FAERS Safety Report 13452841 (Version 4)
Quarter: 2017Q2

REPORT INFORMATION
  Report Type: Spontaneous
  Country: US (occurrence: US)
  Receive Date: 20170418
  Receipt Date: 20170609
  Transmission Date: 20170830
  Serious: Yes (Disabling)
  Sender: FDA-Public Use
  Company Number: US-BIOFRONTERA-000367

PATIENT
  Age: 41 Year
  Sex: Female

DRUGS (4)
  1. AFRIN (OXYMETAZOLINE) [Concomitant]
     Dosage: TWICE DAILY
     Route: 045
  2. EMLA CREAM (LIDOCAINE) [Concomitant]
     Route: 061
     Dates: start: 20170228, end: 20170228
  3. AMELUZ [Suspect]
     Active Substance: AMINOLEVULINIC ACID HYDROCHLORIDE
     Indication: DILATED PORES
     Route: 061
     Dates: start: 20170228, end: 20170228
  4. LOSARTAN. [Concomitant]
     Active Substance: LOSARTAN
     Indication: HYPERTENSION
     Route: 048

REACTIONS (7)
  - Dysgeusia [Not Recovered/Not Resolved]
  - Anosmia [Not Recovered/Not Resolved]
  - Application site erythema [Unknown]
  - Application site oedema [Unknown]
  - Off label use [Unknown]
  - Skin tightness [Unknown]
  - Pain [Unknown]

NARRATIVE: CASE EVENT DATE: 20170228
